FAERS Safety Report 6541373-3 (Version None)
Quarter: 2010Q1

REPORT INFORMATION
  Report Type: 
  Country: None (occurrence: None)
  Receive Date: 20100118
  Receipt Date: 20100107
  Transmission Date: 20100710
  Serious: Yes (Hospitalization, Other)
  Sender: FDA-Public Use
  Company Number: PHHY2009CA32351

PATIENT
  Sex: Female

DRUGS (2)
  1. ZOMETA [Suspect]
     Indication: BREAST CANCER METASTATIC
     Dosage: 4 MG EVERY 4 WEEKS
     Route: 042
     Dates: start: 20090330
  2. CHEMOTHERAPEUTICS NOS [Concomitant]

REACTIONS (11)
  - ASPARTATE AMINOTRANSFERASE INCREASED [None]
  - BLOOD CALCIUM INCREASED [None]
  - CARBOHYDRATE ANTIGEN 15-3 INCREASED [None]
  - HAEMATOCRIT DECREASED [None]
  - HAEMOGLOBIN DECREASED [None]
  - LYMPHOCYTE COUNT DECREASED [None]
  - MEAN CELL HAEMOGLOBIN CONCENTRATION INCREASED [None]
  - NEUTROPHIL COUNT DECREASED [None]
  - PAIN [None]
  - RED BLOOD CELL COUNT DECREASED [None]
  - WHITE BLOOD CELL COUNT DECREASED [None]
